FAERS Safety Report 8443650-8 (Version None)
Quarter: 2012Q2

REPORT INFORMATION
  Report Type: 
  Country: None (occurrence: None)
  Receive Date: 20120618
  Receipt Date: 20120608
  Transmission Date: 20120825
  Serious: Yes (Other)
  Sender: FDA-Public Use
  Company Number: FR-JNJFOC-20120409899

PATIENT
  Age: 52 Year
  Sex: Female
  Weight: 123 kg

DRUGS (8)
  1. VESICARE [Concomitant]
     Indication: PRODUCT USED FOR UNKNOWN INDICATION
     Route: 065
     Dates: start: 20100101
  2. REMICADE [Suspect]
     Dosage: THIRD INFUSION
     Route: 042
     Dates: start: 20120419
  3. NEXIUM [Concomitant]
     Indication: GASTRIC ULCER
     Route: 048
     Dates: start: 20070101
  4. REMICADE [Suspect]
     Indication: PSORIATIC ARTHROPATHY
     Dosage: FIRST INFUSION
     Route: 042
     Dates: start: 20120228
  5. REMICADE [Suspect]
     Dosage: SECOND INFUSION
     Route: 042
     Dates: start: 20120313
  6. IRBESARTAN AND HYDROCHLOROTHIAZIDE [Concomitant]
     Indication: HYPERTENSION
     Route: 048
     Dates: start: 20080101
  7. EUTHYRAL [Concomitant]
     Indication: HYPERTHYROIDISM
     Route: 048
     Dates: start: 19970101
  8. METFORMIN HCL [Concomitant]
     Indication: DIABETES MELLITUS
     Route: 048
     Dates: start: 20100101

REACTIONS (8)
  - PAIN IN EXTREMITY [None]
  - PAIN [None]
  - MALAISE [None]
  - TACHYCARDIA [None]
  - INFUSION RELATED REACTION [None]
  - FATIGUE [None]
  - ERYTHEMA [None]
  - DYSPNOEA [None]
